FAERS Safety Report 5412622-X (Version None)
Quarter: 2007Q3

REPORT INFORMATION
  Report Type: 
  Country: None (occurrence: None)
  Receive Date: 20070809
  Receipt Date: 20070724
  Transmission Date: 20080115
  Serious: Yes (Other)
  Sender: FDA-Public Use
  Company Number: 100#08#2007-02828

PATIENT
  Age: 45 Year
  Sex: Female

DRUGS (2)
  1. TIZANIDINE (TIZANIDINE) (TIZANIDINE) [Suspect]
     Indication: MULTIPLE SCLEROSIS
     Dosage: 3 MG
  2. CIPROFLOXACIN [Suspect]
     Indication: PYURIA
     Dosage: 400 MG; HOSPITAL DAY 2-STOPPED (7 DAYS (REACTION ONSET ON DAY 1))

REACTIONS (9)
  - BLOOD PRESSURE DECREASED [None]
  - BODY TEMPERATURE DECREASED [None]
  - DRUG INTERACTION [None]
  - GAIT DISTURBANCE [None]
  - HEART RATE DECREASED [None]
  - PAIN IN EXTREMITY [None]
  - PYURIA [None]
  - SOMNOLENCE [None]
  - URINE OUTPUT DECREASED [None]
